FAERS Safety Report 7406278-4 (Version None)
Quarter: 2011Q2

REPORT INFORMATION
  Report Type: 
  Country: None (occurrence: None)
  Receive Date: 20110411
  Receipt Date: 20110328
  Transmission Date: 20111010
  Serious: Yes (Hospitalization)
  Sender: FDA-Public Use
  Company Number: US-VIROPHARMA INCORPORATED-20110328CINRY1902

PATIENT
  Sex: Male
  Weight: 3.087 kg

DRUGS (6)
  1. CINRYZE [Suspect]
     Indication: HEREDITARY ANGIOEDEMA
     Route: 064
     Dates: start: 20100313, end: 20101029
  2. CINRYZE [Suspect]
     Route: 064
     Dates: start: 20101030
  3. NASONEX [Concomitant]
     Indication: RHINITIS
     Route: 064
     Dates: start: 20110217
  4. TYLENOL-COLD [Concomitant]
     Indication: UPPER RESPIRATORY TRACT INFECTION
     Route: 064
  5. PRENATAL VITAMINS [Concomitant]
     Indication: PREGNANCY
     Route: 064
     Dates: start: 20100701
  6. VITAMIN D [Concomitant]
     Indication: VITAMIN SUPPLEMENTATION
     Route: 064
     Dates: start: 20100801

REACTIONS (3)
  - DRUG EXPOSURE DURING PREGNANCY [None]
  - BLOOD GLUCOSE FLUCTUATION [None]
  - JAUNDICE [None]
